FAERS Safety Report 4345264-8 (Version None)
Quarter: 2004Q2

REPORT INFORMATION
  Report Type: 
  Country: None (occurrence: None)
  Receive Date: 20040422
  Receipt Date: 20040422
  Transmission Date: 20050107
  Serious: No
  Sender: FDA-Public Use
  Company Number: None

PATIENT
  Age: 68 Year
  Sex: Male
  Weight: 96 kg

DRUGS (1)
  1. HYDROCODONE 7.5/APAP 500 MG MALLIN KROPP [Suspect]
     Indication: PAIN
     Dosage: 7.5/500 MG PO BID PRN
     Route: 048
     Dates: start: 20040211, end: 20040302

REACTIONS (3)
  - ASTHENIA [None]
  - DIZZINESS [None]
  - NAUSEA [None]
